FAERS Safety Report 7158595-3 (Version None)
Quarter: 2010Q4

REPORT INFORMATION
  Report Type: 
  Country: None (occurrence: None)
  Receive Date: 20101214
  Receipt Date: 20100611
  Transmission Date: 20110411
  Serious: No
  Sender: FDA-Public Use
  Company Number: US-ASTRAZENECA-2010SE27400

PATIENT
  Sex: Male
  Weight: 104.3 kg

DRUGS (4)
  1. CRESTOR [Suspect]
     Indication: HYPERCHOLESTEROLAEMIA
     Route: 048
  2. BENICAR [Concomitant]
     Indication: BLOOD PRESSURE
  3. TOPROL-XL [Concomitant]
     Indication: BLOOD PRESSURE
  4. EFFIENT [Concomitant]
     Indication: ANTICOAGULANT THERAPY

REACTIONS (3)
  - PHOTOSENSITIVITY REACTION [None]
  - RASH [None]
  - SUNBURN [None]
